FAERS Safety Report 18273878 (Version 2)
Quarter: 2020Q4

REPORT INFORMATION
  Report Type: Report from Study
  Country: None (occurrence: US)
  Receive Date: 20200916
  Receipt Date: 20201022
  Transmission Date: 20210113
  Serious: Yes (Hospitalization, Other)
  Sender: FDA-Public Use
  Company Number: US-ABBVIE-20K-163-3567286-00

PATIENT
  Sex: Male
  Weight: 86.26 kg

DRUGS (1)
  1. SYNTHROID [Suspect]
     Active Substance: LEVOTHYROXINE SODIUM
     Indication: HYPOTHYROIDISM
     Route: 048
     Dates: start: 2000

REACTIONS (4)
  - Abdominal discomfort [Not Recovered/Not Resolved]
  - Skin cancer [Unknown]
  - Dementia [Not Recovered/Not Resolved]
  - Cholecystectomy [Unknown]

NARRATIVE: CASE EVENT DATE: 2019
